FAERS Safety Report 15590242 (Version 1)
Quarter: 2018Q4

REPORT INFORMATION
  Report Type: Spontaneous
  Country: ES (occurrence: ES)
  Receive Date: 20181106
  Receipt Date: 20181106
  Transmission Date: 20190205
  Serious: Yes (Hospitalization)
  Sender: FDA-Public Use
  Company Number: ES-PENTEC HEALTH-2018PEN00062

PATIENT
  Age: 53 Year
  Sex: Male

DRUGS (3)
  1. VANCOMYCIN HYDROCHLORIDE. [Suspect]
     Active Substance: VANCOMYCIN HYDROCHLORIDE
     Indication: ENTEROCOCCAL BACTERAEMIA
     Dosage: 4 ROUNDS OF TREATMENT
     Route: 065
  2. DALBAVANCIN. [Suspect]
     Active Substance: DALBAVANCIN
     Indication: ENTEROCOCCAL BACTERAEMIA
     Dosage: UNK
     Route: 065
  3. TECOPLANIN [Suspect]
     Active Substance: TEICOPLANIN
     Indication: ENTEROCOCCAL BACTERAEMIA
     Dosage: UNK
     Route: 065

REACTIONS (1)
  - Neutropenia [Recovered/Resolved]
